FAERS Safety Report 5086564-6 (Version None)
Quarter: 2006Q3

REPORT INFORMATION
  Report Type: 
  Country: None (occurrence: None)
  Receive Date: 20060823
  Receipt Date: 20060807
  Transmission Date: 20061208
  Serious: Yes (Other)
  Sender: FDA-Public Use
  Company Number: US-GLAXOSMITHKLINE-A0615891A

PATIENT
  Age: 53 Year
  Sex: Female
  Weight: 78.6 kg

DRUGS (2)
  1. LAMICTAL [Suspect]
     Indication: MEDICATION ERROR
     Dosage: 200MG UNKNOWN
     Route: 048
     Dates: start: 20060104, end: 20060126
  2. LAMISIL [Suspect]
     Indication: DRUG USE FOR UNKNOWN INDICATION
     Route: 065

REACTIONS (5)
  - ANAEMIA [None]
  - LYMPHADENOPATHY [None]
  - MEDICATION ERROR [None]
  - NEUTROPENIA [None]
  - PLATELET COUNT INCREASED [None]
